FAERS Safety Report 7825906-2 (Version None)
Quarter: 2011Q4

REPORT INFORMATION
  Report Type: 
  Country: None (occurrence: None)
  Receive Date: 20111019
  Receipt Date: 20111011
  Transmission Date: 20120403
  Serious: Yes (Hospitalization)
  Sender: FDA-Public Use
  Company Number: JP-ROCHE-768615

PATIENT
  Age: 67 Year
  Sex: Male
  Weight: 59 kg

DRUGS (15)
  1. PL [Concomitant]
     Dates: start: 20110307, end: 20110311
  2. COPEGUS [Suspect]
     Route: 048
     Dates: start: 20100830, end: 20101003
  3. COPEGUS [Suspect]
     Route: 048
     Dates: start: 20101018, end: 20101024
  4. COPEGUS [Suspect]
     Indication: HEPATITIS C
     Route: 048
     Dates: start: 20100720, end: 20100722
  5. PEGASYS [Suspect]
     Indication: HEPATITIS C
     Dosage: ADMINISTRATION EVERY MONDAY. ON 14 MARCH 2011 REPORTED THAT INF ADMINISTRATION WAS SUSPENDED.
     Route: 058
     Dates: start: 20100621, end: 20110307
  6. ACETAMINOPHEN [Concomitant]
     Dates: start: 20110310, end: 20110318
  7. COPEGUS [Suspect]
     Route: 048
  8. ADALAT [Concomitant]
     Dates: start: 20100510
  9. PEGASYS [Suspect]
     Route: 058
     Dates: start: 20100614, end: 20110620
  10. PEGASYS [Suspect]
     Route: 058
  11. COPEGUS [Suspect]
     Route: 048
     Dates: start: 20101004, end: 20101011
  12. COPEGUS [Suspect]
     Route: 048
     Dates: start: 20101012, end: 20101017
  13. COPEGUS [Suspect]
     Route: 048
     Dates: start: 20100823, end: 20100829
  14. ZOLPIDEM [Concomitant]
     Dates: start: 20100726, end: 20100727
  15. HUSCODE [Concomitant]
     Dates: start: 20110307, end: 20110311

REACTIONS (3)
  - HAEMOGLOBIN DECREASED [None]
  - INSOMNIA [None]
  - INTERSTITIAL LUNG DISEASE [None]
